FAERS Safety Report 20844204 (Version 1)
Quarter: 2022Q2

REPORT INFORMATION
  Report Type: Spontaneous
  Country: US (occurrence: US)
  Receive Date: 20220518
  Receipt Date: 20220518
  Transmission Date: 20220720
  Serious: Yes (Hospitalization)
  Sender: FDA-Public Use
  Company Number: US-ALKERMES INC.-ALK-2022-002242

PATIENT
  Age: 29 Year
  Sex: Male

DRUGS (1)
  1. LYBALVI [Suspect]
     Active Substance: OLANZAPINE\SAMIDORPHAN L-MALATE
     Indication: Schizophrenia
     Dosage: UNK, QD
     Route: 048

REACTIONS (16)
  - Schizophrenia [Unknown]
  - Haemodynamic instability [Unknown]
  - Gait disturbance [Unknown]
  - Therapeutic response decreased [Unknown]
  - Low density lipoprotein increased [Unknown]
  - Salivary gland disorder [Unknown]
  - Blood pressure fluctuation [Unknown]
  - Drooling [Unknown]
  - Metabolic disorder [Unknown]
  - Tremor [Unknown]
  - Weight increased [Unknown]
  - Blood triglycerides increased [Unknown]
  - Blood glucose increased [Unknown]
  - Blood insulin increased [Unknown]
  - Sedation [Unknown]
  - Somnolence [Unknown]
